FAERS Safety Report 8536322 (Version 8)
Quarter: 2012Q4

REPORT INFORMATION
  Report Type: Report from Study
  Country: CA (occurrence: CA)
  Receive Date: 20120430
  Receipt Date: 20121019
  Transmission Date: 20130627
  Serious: Yes (Hospitalization)
  Sender: FDA-Public Use
  Company Number: CA-ASTRAZENECA-2012SE22908

PATIENT
  Age: 25147 Day
  Sex: Female

DRUGS (16)
  1. AZD6140 [Suspect]
     Indication: CORONARY ARTERY DISEASE
     Route: 048
     Dates: start: 20111104, end: 20120401
  2. ASA [Suspect]
     Indication: PROPHYLAXIS
     Route: 048
  3. VITAMIN B12 [Concomitant]
     Indication: VITAMIN SUPPLEMENTATION
     Route: 048
  4. VITAMIN D [Concomitant]
     Indication: VITAMIN SUPPLEMENTATION
     Route: 048
  5. MAGNESIUM GLUCONATE [Concomitant]
     Indication: MINERAL SUPPLEMENTATION
     Route: 048
  6. LIPITOR [Concomitant]
     Indication: HYPERLIPIDAEMIA
     Route: 048
  7. DOCUSATE SODIUM [Concomitant]
     Indication: CONSTIPATION
     Route: 048
  8. ALLOPURINOL [Concomitant]
     Indication: GOUT
     Route: 048
  9. CALCIUM [Concomitant]
     Indication: MINERAL SUPPLEMENTATION
     Route: 048
  10. APO FENO SUPER [Concomitant]
     Indication: HYPERLIPIDAEMIA
     Route: 048
  11. RAMIPRIL [Concomitant]
     Indication: MYOCARDIAL INFARCTION
     Route: 048
  12. LENOLTEC NO 3 [Concomitant]
     Indication: BACK PAIN
     Route: 048
  13. AVANDIA [Concomitant]
     Indication: MYOCARDIAL INFARCTION
     Route: 048
  14. METOPROLOL [Concomitant]
     Indication: MYOCARDIAL INFARCTION
     Route: 048
  15. QUININE SULFATE [Concomitant]
     Indication: MUSCLE SPASMS
     Route: 048
  16. METFORMIN [Concomitant]
     Indication: TYPE 2 DIABETES MELLITUS
     Route: 048

REACTIONS (1)
  - Diverticulum intestinal haemorrhagic [Recovered/Resolved]
